FAERS Safety Report 11848295 (Version 10)
Quarter: 2016Q4

REPORT INFORMATION
  Report Type: Report from Study
  Country: CA (occurrence: CA)
  Receive Date: 20151217
  Receipt Date: 20161208
  Transmission Date: 20170206
  Serious: Yes (Other)
  Sender: FDA-Public Use
  Company Number: CA-ROCHE-1212141

PATIENT
  Age: 47 Year
  Sex: Female
  Weight: 115.7 kg

DRUGS (13)
  1. METHOTREXATE. [Concomitant]
     Active Substance: METHOTREXATE
  2. SULFATRIM [Concomitant]
     Active Substance: SULFAMETHOXAZOLE\TRIMETHOPRIM
  3. DIPHENHYDRAMINE HCL [Concomitant]
     Active Substance: DIPHENHYDRAMINE HYDROCHLORIDE
     Route: 048
     Dates: start: 20091106
  4. ACTEMRA [Suspect]
     Active Substance: TOCILIZUMAB
     Indication: BEHCET^S SYNDROME
     Route: 042
     Dates: start: 20141008
  5. RITUXAN [Suspect]
     Active Substance: RITUXIMAB
     Indication: BEHCET^S SYNDROME
     Dosage: LAST DOSE PRIOR TO ADVERSE EVENT ON: 17/JUN/2013
     Route: 042
     Dates: start: 20081215, end: 20140421
  6. ACETAMINOPHEN. [Concomitant]
     Active Substance: ACETAMINOPHEN
     Route: 048
     Dates: start: 20091106
  7. COVERSYL [Concomitant]
     Active Substance: PERINDOPRIL
  8. TRAMCET [Concomitant]
     Active Substance: ACETAMINOPHEN\TRAMADOL
  9. METHYLPREDNISOLONE. [Concomitant]
     Active Substance: METHYLPREDNISOLONE
     Route: 042
     Dates: start: 20091106
  10. ZYTRAM [Concomitant]
     Active Substance: TRAMADOL HYDROCHLORIDE
  11. LEUCOVORIN. [Concomitant]
     Active Substance: LEUCOVORIN
  12. TECTA [Concomitant]
     Active Substance: PANTOPRAZOLE MAGNESIUM
  13. PREDNISONE. [Concomitant]
     Active Substance: PREDNISONE
     Route: 065

REACTIONS (30)
  - Affective disorder [Not Recovered/Not Resolved]
  - Behcet^s syndrome [Not Recovered/Not Resolved]
  - Diarrhoea [Not Recovered/Not Resolved]
  - Headache [Recovering/Resolving]
  - Off label use [Unknown]
  - Rheumatoid arthritis [Recovering/Resolving]
  - Movement disorder [Not Recovered/Not Resolved]
  - Frustration tolerance decreased [Not Recovered/Not Resolved]
  - Headache [Not Recovered/Not Resolved]
  - Drug effect decreased [Unknown]
  - Cerebral disorder [Unknown]
  - Fatigue [Not Recovered/Not Resolved]
  - Pain [Unknown]
  - Urticaria [Unknown]
  - Behcet^s syndrome [Not Recovered/Not Resolved]
  - Speech disorder [Not Recovered/Not Resolved]
  - Rotator cuff syndrome [Unknown]
  - Therapy partial responder [Unknown]
  - Hypoaesthesia [Not Recovered/Not Resolved]
  - Pain [Not Recovered/Not Resolved]
  - Weight decreased [Not Recovered/Not Resolved]
  - Hot flush [Recovering/Resolving]
  - Herpes zoster [Unknown]
  - Stress fracture [Not Recovered/Not Resolved]
  - Therapeutic response decreased [Unknown]
  - Abdominal pain lower [Unknown]
  - Behcet^s syndrome [Recovered/Resolved]
  - Headache [Not Recovered/Not Resolved]
  - Fall [Unknown]
  - Behcet^s syndrome [Unknown]

NARRATIVE: CASE EVENT DATE: 2013
